FAERS Safety Report 5691322-5 (Version None)
Quarter: 2008Q2

REPORT INFORMATION
  Report Type: 
  Country: None (occurrence: None)
  Receive Date: 20080402
  Receipt Date: 20080321
  Transmission Date: 20081010
  Serious: Yes (Death)
  Sender: FDA-Public Use
  Company Number: US-ELI_LILLY_AND_COMPANY-US200803005665

PATIENT
  Age: 18 Year
  Sex: Male

DRUGS (3)
  1. ZYPREXA [Suspect]
     Dosage: 20 MG, UNK
     Dates: start: 20070901
  2. LEXAPRO [Concomitant]
     Dosage: UNK, UNK
  3. KLONOPIN [Concomitant]
     Dosage: UNK, UNK

REACTIONS (1)
  - COMPLETED SUICIDE [None]
